FAERS Safety Report 7502020-7 (Version None)
Quarter: 2011Q2

REPORT INFORMATION
  Report Type: 
  Country: None (occurrence: None)
  Receive Date: 20110523
  Receipt Date: 20110523
  Transmission Date: 20111010
  Serious: Yes (Other)
  Sender: FDA-Public Use
  Company Number: None

PATIENT
  Sex: Female
  Weight: 87.0906 kg

DRUGS (2)
  1. PREMARIN [Suspect]
     Indication: MENOPAUSAL SYMPTOMS
     Dosage: 1/2 GRAM DAILY FOR 1 WK THEN 1-3 X PER WEEK VAGINAL
     Route: 067
  2. PREMARIN [Suspect]
     Indication: VULVOVAGINAL DRYNESS
     Dosage: 1/2 GRAM DAILY FOR 1 WK THEN 1-3 X PER WEEK VAGINAL
     Route: 067

REACTIONS (4)
  - CEREBROVASCULAR ACCIDENT [None]
  - HYPERTENSION [None]
  - MIGRAINE [None]
  - METAMORPHOPSIA [None]
